FAERS Safety Report 5142044-0 (Version None)
Quarter: 2006Q4

REPORT INFORMATION
  Report Type: 
  Country: None (occurrence: None)
  Receive Date: 20061102
  Receipt Date: 20061016
  Transmission Date: 20070319
  Serious: Yes (Death)
  Sender: FDA-Public Use
  Company Number: US-AMGEN-US197069

PATIENT
  Sex: Female

DRUGS (21)
  1. PANITUMUMAB [Suspect]
     Route: 042
     Dates: start: 20060718, end: 20061010
  2. OXALIPLATIN [Suspect]
     Route: 042
  3. FOLINIC ACID [Suspect]
     Route: 042
  4. FLUOROURACIL [Suspect]
     Route: 042
  5. AVASTIN [Suspect]
     Route: 042
  6. AMBIEN [Concomitant]
     Route: 065
  7. REGLAN [Concomitant]
     Route: 065
  8. ALOXI [Concomitant]
     Route: 065
  9. DECADRON [Concomitant]
     Route: 065
  10. TYLENOL [Concomitant]
     Route: 065
  11. ATIVAN [Concomitant]
     Route: 065
  12. EMEND [Concomitant]
     Route: 065
  13. CLEOCIN HYDROCHLORIDE [Concomitant]
     Route: 061
  14. PRILOSEC [Concomitant]
     Route: 065
  15. LIDOCAINE [Concomitant]
     Route: 065
  16. ACTIVASE [Concomitant]
     Route: 065
  17. COUMADIN [Concomitant]
     Route: 065
  18. PEPTO-BISMOL [Concomitant]
     Route: 065
  19. LOMOTIL [Concomitant]
     Route: 065
  20. KYTRIL [Concomitant]
     Route: 065
  21. POTASSIUM CHLORIDE [Concomitant]
     Route: 065

REACTIONS (5)
  - ATELECTASIS [None]
  - HYPERCOAGULATION [None]
  - PULMONARY EMBOLISM [None]
  - PULSE ABSENT [None]
  - VENTRICULAR FIBRILLATION [None]
